FAERS Safety Report 9380151 (Version 2)
Quarter: 2013Q3

REPORT INFORMATION
  Report Type: Report from Study
  Country: BR (occurrence: BR)
  Receive Date: 20130702
  Receipt Date: 20130906
  Transmission Date: 20140515
  Serious: Yes (Other)
  Sender: FDA-Public Use
  Company Number: PHHY2013BR067073

PATIENT
  Sex: Female
  Weight: 57 kg

DRUGS (6)
  1. GALVUS [Suspect]
     Indication: DIABETES MELLITUS
     Dosage: 2 DF, UNK
     Route: 048
  2. GALVUS [Suspect]
     Dosage: 2 DF(50 MG), DAILY
     Route: 048
  3. ACETYLSALICYLIC ACID SANDOZ [Suspect]
     Dosage: 100 MG, DAILY
     Route: 048
  4. RENITEC /NET/ [Suspect]
     Indication: RENAL DISORDER
     Dosage: 10 MG, DAILY
     Route: 048
     Dates: start: 2004
  5. RENITEC /NET/ [Suspect]
     Indication: BLOOD POTASSIUM ABNORMAL
  6. MERITOR [Suspect]
     Indication: DIABETES MELLITUS
     Dosage: 2 DF (2/1000MG), DAILY
     Route: 048

REACTIONS (5)
  - Gliosis [Recovered/Resolved]
  - Visual impairment [Recovered/Resolved]
  - Memory impairment [Recovered/Resolved]
  - Dizziness [Recovered/Resolved]
  - Diarrhoea [Recovered/Resolved]
